FAERS Safety Report 13879753 (Version 1)
Quarter: 2017Q3

REPORT INFORMATION
  Report Type: Spontaneous
  Country: DE (occurrence: DE)
  Receive Date: 20170818
  Receipt Date: 20170818
  Transmission Date: 20171127
  Serious: No
  Sender: FDA-Public Use
  Company Number: DE-ALKEM LABORATORIES LIMITED-DE-ALKEM-2017-00493

PATIENT

DRUGS (6)
  1. OLANZAPINE. [Suspect]
     Active Substance: OLANZAPINE
     Indication: PRODUCT USED FOR UNKNOWN INDICATION
     Dosage: 20 MG, HOURLY
     Route: 048
     Dates: start: 20160512, end: 20160516
  2. QUILONUM RETARD [Interacting]
     Active Substance: LITHIUM CARBONATE
     Dosage: 1350 MG, QD
     Route: 048
     Dates: start: 20160501
  3. QUILONUM RETARD [Interacting]
     Active Substance: LITHIUM CARBONATE
     Indication: PRODUCT USED FOR UNKNOWN INDICATION
     Dosage: 900 MG, QD
     Route: 048
     Dates: start: 20150701, end: 20160430
  4. OLANZAPINE. [Suspect]
     Active Substance: OLANZAPINE
     Dosage: 10 MG, HOURLY
     Route: 048
     Dates: start: 20160525
  5. VALPROAT [Concomitant]
     Active Substance: VALPROATE SODIUM
     Indication: PRODUCT USED FOR UNKNOWN INDICATION
     Dosage: 1500 MG, UNK
     Route: 048
     Dates: start: 20160517, end: 20160530
  6. OLANZAPINE. [Suspect]
     Active Substance: OLANZAPINE
     Dosage: 30 MG, HOURLY
     Route: 048
     Dates: start: 20160517, end: 20160523

REACTIONS (3)
  - Dyskinesia [Recovered/Resolved]
  - Dysphagia [Recovered/Resolved]
  - Sensation of foreign body [Recovered/Resolved]

NARRATIVE: CASE EVENT DATE: 20160524
